FAERS Safety Report 8346087-5 (Version None)
Quarter: 2012Q2

REPORT INFORMATION
  Report Type: 
  Country: None (occurrence: None)
  Receive Date: 20120504
  Receipt Date: 20120418
  Transmission Date: 20120825
  Serious: Yes (Life-Threatening, Hospitalization)
  Sender: FDA-Public Use
  Company Number: 2012AP000969

PATIENT
  Age: 60 Year
  Sex: Male

DRUGS (7)
  1. RAMIPRIL [Suspect]
     Indication: PRODUCT USED FOR UNKNOWN INDICATION
     Dates: end: 20120321
  2. AMLODIPINE [Concomitant]
  3. CLOPIDEGREL [Concomitant]
  4. OMEPRAZOLE [Concomitant]
  5. CO-DYDRAMOL (PARAMOL-118) [Suspect]
     Dosage: UNKNOWN
     Dates: start: 20120320, end: 20120321
  6. SIMVASTATIN [Concomitant]
  7. IBUPROFEN [Suspect]
     Indication: PRODUCT USED FOR UNKNOWN INDICATION
     Dosage: UNKNOWN

REACTIONS (6)
  - EPIGLOTTIC OEDEMA [None]
  - LOSS OF CONSCIOUSNESS [None]
  - LIP SWELLING [None]
  - SWOLLEN TONGUE [None]
  - DROOLING [None]
  - ANGIOEDEMA [None]
